FAERS Safety Report 5149047-0 (Version None)
Quarter: 2006Q4

REPORT INFORMATION
  Report Type: 
  Country: None (occurrence: None)
  Receive Date: 20061113
  Receipt Date: 20061106
  Transmission Date: 20070319
  Serious: Yes (Other)
  Sender: FDA-Public Use
  Company Number: US-JNJFOC-20061101580

PATIENT
  Age: 90 Year
  Sex: Male
  Weight: 70.31 kg

DRUGS (1)
  1. LEVAQUIN [Suspect]
     Indication: INFECTION
     Route: 048
     Dates: start: 20050101, end: 20050101

REACTIONS (2)
  - MACULAR DEGENERATION [None]
  - TENDONITIS [None]
